FAERS Safety Report 13413451 (Version 3)
Quarter: 2018Q1

REPORT INFORMATION
  Report Type: Spontaneous
  Country: US (occurrence: US)
  Receive Date: 20170406
  Receipt Date: 20180312
  Transmission Date: 20180508
  Serious: No
  Sender: FDA-Public Use
  Company Number: US-JNJFOC-20170313083

PATIENT
  Sex: Male

DRUGS (6)
  1. RISPERDAL [Suspect]
     Active Substance: RISPERIDONE
     Indication: PSYCHOTIC DISORDER
     Dosage: VARYING DOSE OF 1.0 MG, 1.5 MG AND 2.0 MG
     Route: 048
     Dates: start: 200408, end: 200512
  2. RISPERDAL [Suspect]
     Active Substance: RISPERIDONE
     Indication: SCHIZOPHRENIA
     Dosage: VARYING DOSE OF 1.0 MG, 1.5 MG AND 2.0 MG
     Route: 048
     Dates: start: 200408, end: 200512
  3. RISPERDAL [Suspect]
     Active Substance: RISPERIDONE
     Indication: SCHIZOPHRENIA
     Dosage: VARYING DOSE OF 1.0 MG, 1.5 MG AND 2.0 MG
     Route: 048
     Dates: start: 20041012, end: 20050322
  4. RISPERDAL [Suspect]
     Active Substance: RISPERIDONE
     Indication: PSYCHOTIC DISORDER
     Dosage: VARYING DOSE OF 1.0 MG, 1.5 MG AND 2.0 MG
     Route: 048
     Dates: start: 20041012, end: 20050322
  5. RISPERDAL [Suspect]
     Active Substance: RISPERIDONE
     Indication: DEPRESSION
     Dosage: VARYING DOSE OF 1.0 MG, 1.5 MG AND 2.0 MG
     Route: 048
     Dates: start: 200408, end: 200512
  6. RISPERDAL [Suspect]
     Active Substance: RISPERIDONE
     Indication: DEPRESSION
     Dosage: VARYING DOSE OF 1.0 MG, 1.5 MG AND 2.0 MG
     Route: 048
     Dates: start: 20041012, end: 20050322

REACTIONS (3)
  - Galactorrhoea [Unknown]
  - Gynaecomastia [Unknown]
  - Emotional distress [Unknown]
